FAERS Safety Report 15434829 (Version 1)
Quarter: 2018Q3

REPORT INFORMATION
  Report Type: Spontaneous
  Country: US (occurrence: US)
  Receive Date: 20180922
  Receipt Date: 20180922
  Transmission Date: 20181010
  Serious: No
  Sender: FDA-Public Use
  Company Number: None

PATIENT
  Age: 63 Year
  Sex: Female
  Weight: 53.55 kg

DRUGS (2)
  1. MIRTAZAPINE 15MG TABLET, YELLOW ROUND WITH 9 3 FRONT 7206BACK [Suspect]
     Active Substance: MIRTAZAPINE
     Indication: DEPRESSION
     Dosage: ?          QUANTITY:30 TABLET(S);?
     Route: 048
     Dates: start: 20180820, end: 20180824
  2. MIRTAZAPINE 15MG TABLET, YELLOW ROUND WITH 9 3 FRONT 7206BACK [Suspect]
     Active Substance: MIRTAZAPINE
     Indication: SLEEP DISORDER THERAPY
     Dosage: ?          QUANTITY:30 TABLET(S);?
     Route: 048
     Dates: start: 20180820, end: 20180824

REACTIONS (5)
  - Drug withdrawal syndrome [None]
  - Middle insomnia [None]
  - Product substitution issue [None]
  - Non-24-hour sleep-wake disorder [None]
  - Intentional product use issue [None]
